FAERS Safety Report 11068467 (Version 1)
Quarter: 2015Q2

REPORT INFORMATION
  Report Type: Spontaneous
  Country: US (occurrence: None)
  Receive Date: 20150424
  Receipt Date: 20150424
  Transmission Date: 20150821
  Serious: Yes (Other)
  Sender: FDA-Public Use
  Company Number: None

PATIENT
  Age: 42 Year
  Sex: Female
  Weight: 61.24 kg

DRUGS (5)
  1. SALONPAS PAIN RELIEVING [Suspect]
     Active Substance: CAMPHOR (SYNTHETIC)\MENTHOL\METHYL SALICYLATE
     Indication: NECK PAIN
     Dosage: APPLIED TO A SURFACE, USUALLY THE SKIN
  2. IBUPROFEN. [Concomitant]
     Active Substance: IBUPROFEN
  3. SPRINTED BIRTH CONTROL [Concomitant]
  4. VICODIN [Concomitant]
     Active Substance: ACETAMINOPHEN\HYDROCODONE BITARTRATE
  5. MULTIVITAMIN [Concomitant]
     Active Substance: VITAMINS

REACTIONS (4)
  - Urticaria [None]
  - Application site burn [None]
  - Pruritus [None]
  - Anger [None]

NARRATIVE: CASE EVENT DATE: 20150405
